FAERS Safety Report 22073053 (Version 1)
Quarter: 2023Q1

REPORT INFORMATION
  Report Type: Report from Study
  Country: US (occurrence: None)
  Receive Date: 20230308
  Receipt Date: 20230308
  Transmission Date: 20230417
  Serious: Yes (Hospitalization, Other)
  Sender: FDA-Public Use
  Company Number: US-ROCHE-3231904

PATIENT
  Age: 77 Year
  Sex: Female
  Weight: 44.1 kg

DRUGS (2)
  1. BEVACIZUMAB [Suspect]
     Active Substance: BEVACIZUMAB
     Indication: Metastatic malignant melanoma
     Route: 065
  2. ATEZOLIZUMAB [Suspect]
     Active Substance: ATEZOLIZUMAB
     Indication: Metastatic malignant melanoma
     Route: 041
     Dates: start: 20221011

REACTIONS (9)
  - Meningeal disorder [Unknown]
  - Stomatitis [Unknown]
  - Dehydration [Unknown]
  - Non-cardiac chest pain [Unknown]
  - Weight decreased [Unknown]
  - Tumour pain [Unknown]
  - Herpes simplex reactivation [Unknown]
  - Embolism [Unknown]
  - Muscular weakness [Unknown]

NARRATIVE: CASE EVENT DATE: 20221201
